FAERS Safety Report 17324088 (Version 2)
Quarter: 2020Q4

REPORT INFORMATION
  Report Type: Spontaneous
  Country: US (occurrence: US)
  Receive Date: 20200127
  Receipt Date: 20201006
  Transmission Date: 20210113
  Serious: No
  Sender: FDA-Public Use
  Company Number: US-LUPIN PHARMACEUTICALS INC.-2020-00026

PATIENT
  Age: 44 Year
  Sex: Female

DRUGS (2)
  1. QUININE [Suspect]
     Active Substance: QUININE
     Indication: BABESIOSIS
     Dosage: UNK
     Route: 065
  2. CLINDAMYCIN. [Concomitant]
     Active Substance: CLINDAMYCIN
     Indication: BABESIOSIS
     Dosage: UNK
     Route: 048

REACTIONS (1)
  - Maternal exposure during pregnancy [Unknown]
